FAERS Safety Report 6623459-8 (Version None)
Quarter: 2010Q1

REPORT INFORMATION
  Report Type: 
  Country: None (occurrence: None)
  Receive Date: 20100310
  Receipt Date: 20100301
  Transmission Date: 20100710
  Serious: Yes (Hospitalization)
  Sender: FDA-Public Use
  Company Number: US-ASTRAZENECA-2010SE09038

PATIENT
  Age: 347 Month
  Sex: Female
  Weight: 56.7 kg

DRUGS (11)
  1. SEROQUEL [Suspect]
     Indication: ANXIETY
     Route: 048
     Dates: start: 20091201, end: 20100201
  2. SEROQUEL [Suspect]
     Indication: BORDERLINE PERSONALITY DISORDER
     Route: 048
     Dates: start: 20091201, end: 20100201
  3. SEROQUEL [Suspect]
     Route: 048
     Dates: start: 20100101, end: 20100101
  4. SEROQUEL [Suspect]
     Route: 048
     Dates: start: 20100101, end: 20100101
  5. ADDERALL 30 [Concomitant]
  6. CYMBALTA [Concomitant]
  7. LAMICTAL CD [Concomitant]
  8. SYNTHROID [Concomitant]
  9. LOESTRAN 24FE [Concomitant]
  10. TOPAMAX [Concomitant]
  11. ABILIFY [Concomitant]

REACTIONS (2)
  - FATIGUE [None]
  - HYPERSOMNIA [None]
